FAERS Safety Report 7306712-4 (Version None)
Quarter: 2011Q1

REPORT INFORMATION
  Report Type: 
  Country: None (occurrence: None)
  Receive Date: 20110222
  Receipt Date: 20110214
  Transmission Date: 20110831
  Serious: Yes (Hospitalization)
  Sender: FDA-Public Use
  Company Number: US-US-EMD SERONO, INC.-230105M10USA

PATIENT
  Sex: Female
  Weight: 68 kg

DRUGS (5)
  1. TYLENOL PM [Concomitant]
     Indication: PREMEDICATION
  2. REBIF [Suspect]
     Indication: MULTIPLE SCLEROSIS
     Route: 058
     Dates: start: 20090902
  3. PROVIGIL [Concomitant]
  4. CYMBALTA [Concomitant]
     Indication: ANXIETY
  5. LEXAPRO [Concomitant]

REACTIONS (4)
  - INFLUENZA LIKE ILLNESS [None]
  - CONTUSION [None]
  - MYOCARDIAL INFARCTION [None]
  - CORONARY ARTERY OCCLUSION [None]
